FAERS Safety Report 22125857 (Version 3)
Quarter: 2023Q2

REPORT INFORMATION
  Report Type: Spontaneous
  Country: BE (occurrence: BE)
  Receive Date: 20230322
  Receipt Date: 20230408
  Transmission Date: 20230722
  Serious: Yes (Other)
  Sender: FDA-Public Use
  Company Number: BE-AMGEN-BELSP2023029846

PATIENT
  Age: 68 Year
  Sex: Female

DRUGS (17)
  1. PROLIA [Suspect]
     Active Substance: DENOSUMAB
     Indication: Product used for unknown indication
     Dosage: UNK
     Route: 065
     Dates: start: 202204
  2. ENBREL [Suspect]
     Active Substance: ETANERCEPT
     Indication: Spondylitis
     Dosage: UNK
     Route: 065
  3. IBUPROFEN [Concomitant]
     Active Substance: IBUPROFEN
     Dosage: UNK
  4. FLUTICASONE FUROATE\VILANTEROL TRIFENATATE [Concomitant]
     Active Substance: FLUTICASONE FUROATE\VILANTEROL TRIFENATATE
  5. XALOF [Concomitant]
  6. Pantomed [Concomitant]
  7. VERAPAMIL HYDROCHLORIDE [Concomitant]
     Active Substance: VERAPAMIL HYDROCHLORIDE
  8. VENLAFAXINE HYDROCHLORIDE [Concomitant]
     Active Substance: VENLAFAXINE HYDROCHLORIDE
  9. ESCITALOPRAM OXALATE [Concomitant]
     Active Substance: ESCITALOPRAM OXALATE
  10. ALPRAZOLAM [Concomitant]
     Active Substance: ALPRAZOLAM
  11. SULPIRIDE [Concomitant]
     Active Substance: SULPIRIDE
  12. TOVIAZ [Concomitant]
     Active Substance: FESOTERODINE FUMARATE
  13. RISPERDAL [Concomitant]
     Active Substance: RISPERIDONE
  14. HYPERLIPEN [Concomitant]
  15. IBUPROFEN [Concomitant]
     Active Substance: IBUPROFEN
  16. CORTISOL [Concomitant]
     Active Substance: HYDROCORTISONE
  17. ACETAMINOPHEN [Concomitant]
     Active Substance: ACETAMINOPHEN

REACTIONS (1)
  - Pancreatitis [Unknown]

NARRATIVE: CASE EVENT DATE: 20220414
